FAERS Safety Report 5120249-2 (Version None)
Quarter: 2006Q4

REPORT INFORMATION
  Report Type: 
  Country: None (occurrence: None)
  Receive Date: 20061004
  Receipt Date: 20060905
  Transmission Date: 20070319
  Serious: Yes (Hospitalization)
  Sender: FDA-Public Use
  Company Number: US-AMGEN-US192536

PATIENT
  Sex: Female

DRUGS (5)
  1. ENBREL [Suspect]
     Indication: PSORIATIC ARTHROPATHY
     Route: 058
     Dates: start: 20050720
  2. ENBREL [Suspect]
     Indication: PSORIASIS
  3. METHOTREXATE [Concomitant]
     Route: 065
     Dates: start: 20041108
  4. FOLIC ACID [Concomitant]
     Route: 065
  5. VOLTAREN [Concomitant]
     Route: 065
     Dates: start: 20041105

REACTIONS (2)
  - CONDITION AGGRAVATED [None]
  - OSTEOARTHRITIS [None]
